FAERS Safety Report 14597469 (Version 1)
Quarter: 2018Q1

REPORT INFORMATION
  Report Type: Spontaneous
  Country: FR (occurrence: FR)
  Receive Date: 20180305
  Receipt Date: 20180305
  Transmission Date: 20180509
  Serious: Yes (Other)
  Sender: FDA-Public Use
  Company Number: FR-MERCK KGAA-2042946

PATIENT
  Age: 65 Year
  Sex: Female

DRUGS (8)
  1. CARDENSIEL [Concomitant]
     Active Substance: BISOPROLOL FUMARATE
     Route: 048
  2. INEXIUM [Concomitant]
     Active Substance: ESOMEPRAZOLE
     Route: 048
  3. INSPRA [Concomitant]
     Active Substance: EPLERENONE
     Route: 048
  4. STILNOX [Concomitant]
     Active Substance: ZOLPIDEM TARTRATE
     Route: 048
  5. PRAVASTATINE SODIUM ACCORD [Suspect]
     Active Substance: PRAVASTATIN SODIUM
     Route: 048
     Dates: start: 20170509, end: 20170824
  6. NOVOTHYROX [Suspect]
     Active Substance: LEVOTHYROXINE SODIUM
     Indication: HYPOTHYROIDISM
     Route: 048
     Dates: start: 201703
  7. ATACAND [Concomitant]
     Active Substance: CANDESARTAN CILEXETIL
     Route: 048
  8. ASPIRINE PROTECT [Concomitant]
     Active Substance: ASPIRIN
     Route: 048

REACTIONS (10)
  - Diffuse alopecia [Not Recovered/Not Resolved]
  - Irritability [Not Recovered/Not Resolved]
  - Dyspnoea [Not Recovered/Not Resolved]
  - Weight increased [Not Recovered/Not Resolved]
  - Visual impairment [Not Recovered/Not Resolved]
  - Tendonitis [Not Recovered/Not Resolved]
  - Muscle spasms [Not Recovered/Not Resolved]
  - Insomnia [Not Recovered/Not Resolved]
  - Headache [Not Recovered/Not Resolved]
  - Fatigue [Not Recovered/Not Resolved]

NARRATIVE: CASE EVENT DATE: 201704
